FAERS Safety Report 8909941 (Version 1)
Quarter: 2012Q4

REPORT INFORMATION
  Report Type: 
  Country: AU (occurrence: AU)
  Receive Date: 20121114
  Receipt Date: 20121114
  Transmission Date: 20130627
  Serious: Yes (Other)
  Sender: FDA-Public Use
  Company Number: AU-ARROW-2012-19506

PATIENT
  Age: 11 Year
  Weight: 37 kg

DRUGS (1)
  1. IBUPROFEN [Suspect]
     Indication: VIRAL INFECTION
     Dosage: UNK
     Route: 065

REACTIONS (2)
  - Eye swelling [Unknown]
  - Urticaria [Unknown]
